FAERS Safety Report 25367032 (Version 1)
Quarter: 2025Q2

REPORT INFORMATION
  Report Type: Spontaneous
  Country: NL (occurrence: NL)
  Receive Date: 20250528
  Receipt Date: 20250528
  Transmission Date: 20250717
  Serious: Yes (Other)
  Sender: TEVA
  Company Number: NL-TEVA-VS-3334241

PATIENT
  Sex: Female

DRUGS (1)
  1. CISPLATIN [Suspect]
     Active Substance: CISPLATIN
     Indication: Squamous cell carcinoma of head and neck
     Dosage: RECEIVED TOTAL 2 CYCLES OF CISPLATIN 100 MG/M2 TRIWEEKLY WITH A CUMULATIVE DOSE OF 200 MG/M2
     Route: 065

REACTIONS (5)
  - Taste disorder [Unknown]
  - Sleep disorder [Unknown]
  - Dysphagia [Unknown]
  - Neutropenia [Unknown]
  - Dry mouth [Unknown]
